FAERS Safety Report 21858876 (Version 2)
Quarter: 2023Q1

REPORT INFORMATION
  Report Type: 
  Country: None (occurrence: None)
  Receive Date: 20230113
  Receipt Date: 20230207
  Transmission Date: 20230417
  Serious: No
  Sender: FDA-Public Use
  Company Number: None

PATIENT
  Sex: Female

DRUGS (1)
  1. LACTULOSE [Suspect]
     Active Substance: LACTULOSE

REACTIONS (4)
  - Product after taste [Not Recovered/Not Resolved]
  - Headache [Recovered/Resolved]
  - Drug effect less than expected [Not Recovered/Not Resolved]
  - Electrocardiogram abnormal [Unknown]
